FAERS Safety Report 15475159 (Version 1)
Quarter: 2018Q4

REPORT INFORMATION
  Report Type: Spontaneous
  Country: IT (occurrence: IT)
  Receive Date: 20181008
  Receipt Date: 20181008
  Transmission Date: 20190205
  Serious: Yes (Other)
  Sender: FDA-Public Use
  Company Number: IT-TEVA-2018-IT-961723

PATIENT
  Age: 52 Year
  Sex: Female

DRUGS (4)
  1. LORANS 1 MG COMPRESSE [Suspect]
     Active Substance: LORAZEPAM
     Route: 048
     Dates: start: 20180815, end: 20180815
  2. QUETIAPINE. [Suspect]
     Active Substance: QUETIAPINE
     Route: 048
     Dates: start: 20180815, end: 20180815
  3. TIMONACIC METHYL HYDROCHLORIDE [Suspect]
     Active Substance: TIMONACIC
     Route: 048
     Dates: start: 20180815, end: 20180815
  4. TRITTICO 150 MG COMPRESSE RIVESTITE CON FILM A RILASCIO PROLUNGATO [Suspect]
     Active Substance: TRAZODONE HYDROCHLORIDE
     Route: 048
     Dates: start: 20180815, end: 20180815

REACTIONS (4)
  - Confusional state [Recovering/Resolving]
  - Sopor [Recovering/Resolving]
  - Drug abuse [Recovering/Resolving]
  - Suicide attempt [Recovering/Resolving]

NARRATIVE: CASE EVENT DATE: 20180815
